FAERS Safety Report 5605642-3 (Version None)
Quarter: 2008Q1

REPORT INFORMATION
  Report Type: 
  Country: None (occurrence: None)
  Receive Date: 20080123
  Receipt Date: 20080116
  Transmission Date: 20080703
  Serious: Yes (Death, Life-Threatening, Other)
  Sender: FDA-Public Use
  Company Number: APP200800034

PATIENT
  Age: 65 Year
  Sex: Male

DRUGS (25)
  1. AMIODARONE HYDROCHLORIDE [Suspect]
     Indication: ATRIAL FIBRILLATION
     Dosage: INTRAVENOUS
     Route: 042
     Dates: start: 20071003, end: 20071010
  2. E5564/PLACEBO [Suspect]
     Indication: SEPSIS
     Dosage: SEE IMAGE
     Route: 042
     Dates: start: 20070930, end: 20070930
  3. E5564/PLACEBO [Suspect]
     Indication: SEPSIS
     Dosage: SEE IMAGE
     Route: 042
     Dates: start: 20071001, end: 20071001
  4. E5564/PLACEBO [Suspect]
     Indication: SEPSIS
     Dosage: SEE IMAGE
     Route: 042
     Dates: start: 20071001, end: 20071005
  5. INSULIN HUMULIN (HUMAN MIXTARD) [Concomitant]
  6. INSULIN REGULAR (INSULIN BOVINE) [Concomitant]
  7. ROCURONIUM (ROCURONIUM) [Concomitant]
  8. FUROSEMIDE [Concomitant]
  9. CEFAZOLIN [Concomitant]
  10. CEFUROXINE (CEFUROXIME) [Concomitant]
  11. PIPERACILLIN WITH TAZOBACTAM (PIPERACILLIN W/ TAZOBACTAM) [Concomitant]
  12. AMPICILLIN [Concomitant]
  13. HYDROCORTISONE (HYDROCORTISONE) [Concomitant]
  14. RANITIDINE [Concomitant]
  15. PROPOFOL [Concomitant]
  16. ACETAMINOPHEN [Concomitant]
  17. MORPHINE [Concomitant]
  18. POTASSIUM CHLORIDE [Concomitant]
  19. MIDAZOLAM HCL [Concomitant]
  20. DANAPAROID (DANAPAROID) [Concomitant]
  21. RISPERIDONE [Concomitant]
  22. HALOPERIDOL [Concomitant]
  23. IBUPROFEN [Concomitant]
  24. SUBLIMAZE (FENTANYL) [Concomitant]
  25. FUROSEMIDE [Concomitant]

REACTIONS (15)
  - ACUTE RESPIRATORY DISTRESS SYNDROME [None]
  - CARDIAC FAILURE [None]
  - CARDIOGENIC SHOCK [None]
  - CEREBROVASCULAR ACCIDENT [None]
  - CHOLESTASIS [None]
  - CONDITION AGGRAVATED [None]
  - DELAYED RECOVERY FROM ANAESTHESIA [None]
  - DILATATION VENTRICULAR [None]
  - ENCEPHALOPATHY [None]
  - HEPARIN-INDUCED THROMBOCYTOPENIA [None]
  - HEPATIC FAILURE [None]
  - MULTI-ORGAN FAILURE [None]
  - PANCREATITIS [None]
  - RENAL FAILURE ACUTE [None]
  - SEPTIC SHOCK [None]
